FAERS Safety Report 4609784-0 (Version None)
Quarter: 2005Q1

REPORT INFORMATION
  Report Type: 
  Country: None (occurrence: None)
  Receive Date: 20050314
  Receipt Date: 20050309
  Transmission Date: 20050727
  Serious: Yes (Congenital Anomaly)
  Sender: FDA-Public Use
  Company Number: LTI2005A00052

PATIENT
  Age: 6 Month
  Sex: Female

DRUGS (2)
  1. OGAST (LANSOPRAZOLE) (CAPSULES) [Suspect]
     Dosage: 30 MG (30 MG, 1 IN 1 D)
     Route: 064
     Dates: start: 19930101
  2. KETOTIFENE (KETOTIFEN) [Suspect]
     Dates: start: 19930101

REACTIONS (3)
  - DRUG EXPOSURE DURING PREGNANCY [None]
  - MENTAL RETARDATION SEVERITY UNSPECIFIED [None]
  - NOONAN SYNDROME [None]
